FAERS Safety Report 19696834 (Version 1)
Quarter: 2021Q3

REPORT INFORMATION
  Report Type: Spontaneous
  Country: US (occurrence: US)
  Receive Date: 20210813
  Receipt Date: 20210813
  Transmission Date: 20211014
  Serious: No
  Sender: FDA-Public Use
  Company Number: None

PATIENT
  Sex: Female
  Weight: 66.15 kg

DRUGS (18)
  1. MIRTAZAPINE. [Concomitant]
     Active Substance: MIRTAZAPINE
  2. GLIPIZIDE ER [Concomitant]
     Active Substance: GLIPIZIDE
  3. NALOXONE [Concomitant]
     Active Substance: NALOXONE
  4. ZYRTEC [Concomitant]
     Active Substance: CETIRIZINE HYDROCHLORIDE
  5. FEXOFENADINE [Concomitant]
     Active Substance: FEXOFENADINE HYDROCHLORIDE
  6. LISINOPRIL. [Concomitant]
     Active Substance: LISINOPRIL
  7. SUPER B COMPLEX MAXI [Concomitant]
  8. DULOXETINE. [Concomitant]
     Active Substance: DULOXETINE
  9. METATONIN ER [Concomitant]
  10. METFORMIN [Concomitant]
     Active Substance: METFORMIN HYDROCHLORIDE
  11. OXYCODONE ER [Concomitant]
     Active Substance: OXYCODONE
  12. MEKTOVI [Suspect]
     Active Substance: BINIMETINIB
     Indication: OVARIAN CANCER
     Route: 048
  13. ACETAMINOPHEN. [Concomitant]
     Active Substance: ACETAMINOPHEN
  14. ATORVASTATIN [Concomitant]
     Active Substance: ATORVASTATIN
  15. OMEGA 3 [Concomitant]
     Active Substance: OMEGA-3 FATTY ACIDS
  16. DICLOFENAC [Concomitant]
     Active Substance: DICLOFENAC
  17. COLACE [Concomitant]
     Active Substance: DOCUSATE SODIUM
  18. FLUTICASONE. [Concomitant]
     Active Substance: FLUTICASONE

REACTIONS (1)
  - Disease progression [None]
